FAERS Safety Report 9571104 (Version 2)
Quarter: 2021Q3

REPORT INFORMATION
  Report Type: Spontaneous
  Country: IT (occurrence: IT)
  Receive Date: 20131001
  Receipt Date: 20210820
  Transmission Date: 20211014
  Serious: Yes (Hospitalization)
  Sender: FDA-Public Use
  Company Number: PHHY2013IT108172

PATIENT
  Age: 4 Year
  Sex: Female

DRUGS (1)
  1. EVEROLIMUS. [Suspect]
     Active Substance: EVEROLIMUS
     Indication: ASTROCYTOMA, LOW GRADE
     Dosage: UNK
     Route: 048

REACTIONS (5)
  - Injury [Unknown]
  - Oedema [Unknown]
  - Pyrexia [Recovered/Resolved]
  - Lymphangitis [Recovered/Resolved]
  - Pain in extremity [Unknown]
